FAERS Safety Report 7169975-4 (Version None)
Quarter: 2010Q4

REPORT INFORMATION
  Report Type: 
  Country: None (occurrence: None)
  Receive Date: 20101217
  Receipt Date: 20101208
  Transmission Date: 20110411
  Serious: Yes (Other)
  Sender: FDA-Public Use
  Company Number: GB-JNJFOC-20100503949

PATIENT
  Age: 60 Year
  Sex: Female

DRUGS (2)
  1. REMICADE [Suspect]
     Indication: RHEUMATOID ARTHRITIS
     Dosage: STARTED INFLIXIMAB 3 YEARS AGO (DATE AND FREQUENCY UNSPECIFIED)
     Route: 042
  2. METHOTREXATE [Concomitant]

REACTIONS (1)
  - METASTATIC SQUAMOUS CELL CARCINOMA [None]
